FAERS Safety Report 21597036 (Version 1)
Quarter: 2022Q4

REPORT INFORMATION
  Report Type: Spontaneous
  Country: US (occurrence: US)
  Receive Date: 20221115
  Receipt Date: 20221115
  Transmission Date: 20230113
  Serious: No
  Sender: FDA-Public Use
  Company Number: US-AMNEAL PHARMACEUTICALS-2022-AMRX-00503

PATIENT
  Age: 19 Year
  Sex: Male
  Weight: 120 kg

DRUGS (6)
  1. ISOTRETINOIN [Suspect]
     Active Substance: ISOTRETINOIN
     Indication: Acne
     Dosage: 30 MILLIGRAM, DAILY WITH FOOD AND WATER
     Route: 048
     Dates: start: 20211123, end: 20220224
  2. ISOTRETINOIN [Suspect]
     Active Substance: ISOTRETINOIN
     Indication: Scar
  3. CLEANSER [Concomitant]
     Active Substance: SALICYLIC ACID
     Indication: Therapeutic skin care topical
     Dosage: UNK
     Route: 065
  4. UNSPECIFIED INGREDIENT [Concomitant]
     Active Substance: UNSPECIFIED INGREDIENT
     Indication: Therapeutic skin care topical
     Dosage: UNK
     Route: 065
  5. SUNSCREEN [Concomitant]
     Active Substance: HOMOSALATE\OCTINOXATE\OCTISALATE\OXYBENZONE\TITANIUM DIOXIDE
     Indication: Therapeutic skin care topical
     Dosage: UNK
     Route: 065
  6. RETINOIDS FOR TOPICAL USE IN ACNE [Concomitant]
     Indication: Therapeutic skin care topical
     Dosage: UNK
     Route: 061

REACTIONS (6)
  - Hypertriglyceridaemia [Unknown]
  - Epistaxis [Unknown]
  - Xerosis [Unknown]
  - Aspartate aminotransferase increased [Unknown]
  - Alanine aminotransferase increased [Unknown]
  - Blood calcium increased [Recovered/Resolved]

NARRATIVE: CASE EVENT DATE: 20211101
